FAERS Safety Report 18368172 (Version 2)
Quarter: 2020Q4

REPORT INFORMATION
  Report Type: Spontaneous
  Country: GB (occurrence: GB)
  Receive Date: 20201009
  Receipt Date: 20201117
  Transmission Date: 20210114
  Serious: Yes (Other)
  Sender: FDA-Public Use
  Company Number: GB-BAUSCH-BL-2020-028706

PATIENT
  Age: 51 Year
  Sex: Male

DRUGS (13)
  1. CISPLATIN. [Suspect]
     Active Substance: CISPLATIN
     Indication: GERM CELL NEOPLASM
     Dosage: 79 MG, IN 1 LITER (NOT SPECIFIED) (79 MG)
     Route: 065
     Dates: start: 20200825
  2. THIAMINE. [Suspect]
     Active Substance: THIAMINE
     Indication: HYPOVITAMINOSIS
     Route: 065
  3. APREPITANT. [Suspect]
     Active Substance: APREPITANT
     Indication: SUPPORTIVE CARE
     Dosage: D1 (125 MG)
     Route: 065
     Dates: start: 20200825
  4. NAUZELIN [Suspect]
     Active Substance: DOMPERIDONE
     Indication: SUPPORTIVE CARE
     Dosage: AS REQUIRED, (30 MG,1 D)
     Route: 048
     Dates: start: 20200825
  5. SODIUM CHLORIDE. [Suspect]
     Active Substance: SODIUM CHLORIDE
     Indication: MEDICATION DILUTION
     Route: 065
     Dates: start: 20200825, end: 20200825
  6. ENSURE [Suspect]
     Active Substance: AMINO ACIDS\DEXTROSE\ELECTROLYTES NOS\SOYBEAN OIL\VITAMINS
     Indication: NUTRITIONAL SUPPLEMENTATION
     Dosage: TABLETS (1 D)
     Route: 065
  7. ETOPOSIDE. [Suspect]
     Active Substance: ETOPOSIDE
     Indication: GERM CELL NEOPLASM
     Route: 065
     Dates: start: 202007
  8. NICOTINE. [Suspect]
     Active Substance: NICOTINE
     Indication: DRUG THERAPY
     Dosage: PATCH
     Route: 065
  9. DEXAMETHASONE. [Suspect]
     Active Substance: DEXAMETHASONE
     Indication: SUPPORTIVE CARE
     Route: 065
     Dates: start: 20200825
  10. ONDANSETRON [Suspect]
     Active Substance: ONDANSETRON
     Indication: SUPPORTIVE CARE
     Dosage: FOR 3 DAYS (16 MG,1 D
     Route: 048
     Dates: start: 20200825
  11. COLECALCIFEROL [Suspect]
     Active Substance: CHOLECALCIFEROL
     Indication: MINERAL SUPPLEMENTATION
     Dosage: TABLET (1D)
     Route: 065
  12. ETOPOSIDE. [Suspect]
     Active Substance: ETOPOSIDE
     Dosage: IN 1 LITER 2 BAGS (360 MG)
     Route: 065
     Dates: start: 20200825, end: 20200825
  13. APREPITANT. [Suspect]
     Active Substance: APREPITANT
     Dosage: D2 (80 MG)
     Route: 065
     Dates: start: 20200826

REACTIONS (1)
  - Hypersensitivity [Recovered/Resolved]

NARRATIVE: CASE EVENT DATE: 20200825
